FAERS Safety Report 22521624 (Version 1)
Quarter: 2023Q2

REPORT INFORMATION
  Report Type: Spontaneous
  Country: US (occurrence: US)
  Receive Date: 20230605
  Receipt Date: 20230605
  Transmission Date: 20230721
  Serious: Yes (Other)
  Sender: FDA-Public Use
  Company Number: US-BAYER-2023A074146

PATIENT
  Age: 85 Year
  Sex: Male

DRUGS (1)
  1. ADEMPAS [Suspect]
     Active Substance: RIOCIGUAT

REACTIONS (7)
  - Hypersensitivity [None]
  - Skin exfoliation [None]
  - Wheezing [None]
  - Dyspnoea [None]
  - Cardiac discomfort [None]
  - Peripheral swelling [None]
  - Dysphagia [None]
